FAERS Safety Report 19155139 (Version 1)
Quarter: 2021Q2

REPORT INFORMATION
  Report Type: Spontaneous
  Country: CN (occurrence: CN)
  Receive Date: 20210420
  Receipt Date: 20210420
  Transmission Date: 20210717
  Serious: Yes (Other)
  Sender: FDA-Public Use
  Company Number: CN-BAXTER-2021BAX007367

PATIENT
  Age: 50 Year
  Sex: Male
  Weight: 58 kg

DRUGS (5)
  1. MULTIVITAMIN FOR INJECTION(12) [Suspect]
     Active Substance: VITAMINS
     Indication: FOOT FRACTURE
     Route: 041
     Dates: start: 20210306, end: 20210323
  2. NS [Suspect]
     Active Substance: SODIUM CHLORIDE
     Indication: MEDICATION DILUTION
     Dosage: WITH MULTIVITAMIN INJECTION
     Route: 041
     Dates: start: 20210321, end: 20210323
  3. 0.9% SODIUM CHLORIDE INJECTION [Suspect]
     Active Substance: SODIUM CHLORIDE
     Indication: MEDICATION DILUTION
     Dosage: WITH KETOROLAC TROMETHAMINE INJECTION
     Route: 042
     Dates: start: 20210321, end: 20210321
  4. KETOROLAC TROMETHAMINE. [Suspect]
     Active Substance: KETOROLAC TROMETHAMINE
     Indication: FOOT FRACTURE
     Route: 042
     Dates: start: 20210317, end: 20210321
  5. NS [Suspect]
     Active Substance: SODIUM CHLORIDE
     Dosage: WITH GINKGO BILOBA AND DIPYRIDAMOLE INJECTION
     Route: 041
     Dates: start: 20210321, end: 20210323

REACTIONS (2)
  - Dermatitis allergic [Recovering/Resolving]
  - Pruritus [Recovering/Resolving]

NARRATIVE: CASE EVENT DATE: 20210321
